FAERS Safety Report 4296580-X (Version None)
Quarter: 2004Q1

REPORT INFORMATION
  Report Type: 
  Country: None (occurrence: None)
  Receive Date: 20040126
  Receipt Date: 20030917
  Transmission Date: 20041129
  Serious: No
  Sender: FDA-Public Use
  Company Number: USA030845356

PATIENT
  Age: 58 Year
  Sex: Female

DRUGS (1)
  1. STRATTERA [Suspect]
     Indication: ATTENTION DEFICIT/HYPERACTIVITY DISORDER
     Dosage: 40 MG/DAY
     Dates: start: 20030701

REACTIONS (4)
  - ANIMAL BITE [None]
  - BLOOD PRESSURE INCREASED [None]
  - INFECTION [None]
  - TENSION [None]
